FAERS Safety Report 5156106-5 (Version None)
Quarter: 2006Q4

REPORT INFORMATION
  Report Type: 
  Country: None (occurrence: None)
  Receive Date: 20061122
  Receipt Date: 20061109
  Transmission Date: 20070319
  Serious: Yes (Other)
  Sender: FDA-Public Use
  Company Number: PHHO2006BR19103

PATIENT
  Age: 56 Year
  Sex: Female

DRUGS (4)
  1. ZELMAC / HTF 919A [Suspect]
     Indication: IRRITABLE BOWEL SYNDROME
     Dosage: 1 TABLET/DAY
     Route: 048
  2. ZELMAC / HTF 919A [Suspect]
     Dosage: 1/2 TABLET/DAY
     Route: 048
  3. ZELMAC / HTF 919A [Suspect]
     Dosage: 1/4 TABLET/DAY
     Route: 048
  4. FRONTAL [Concomitant]
     Indication: INSOMNIA

REACTIONS (6)
  - BACK PAIN [None]
  - DEHYDRATION [None]
  - DIARRHOEA [None]
  - DIZZINESS [None]
  - FEELING ABNORMAL [None]
  - FLATULENCE [None]
